FAERS Safety Report 12739784 (Version 4)
Quarter: 2016Q4

REPORT INFORMATION
  Report Type: Report from Study
  Country: IL (occurrence: IL)
  Receive Date: 20160913
  Receipt Date: 20161130
  Transmission Date: 20170207
  Serious: Yes (Life-Threatening, Hospitalization, Other)
  Sender: FDA-Public Use
  Company Number: IL-BRISTOL-MYERS SQUIBB COMPANY-BMS-2016-066991

PATIENT
  Age: 51 Year
  Sex: Male
  Weight: 95 kg

DRUGS (18)
  1. NEULASTIM [Concomitant]
     Active Substance: PEGFILGRASTIM
     Indication: NEUTROPENIA
     Dosage: 6 MG, QD
     Route: 058
  2. ZOVIRAX [Concomitant]
     Active Substance: ACYCLOVIR
     Indication: ORAL HERPES
     Dosage: 400 MG, UNK
     Route: 048
  3. AUGMENTIN [Concomitant]
     Active Substance: AMOXICILLIN\CLAVULANATE POTASSIUM
     Indication: HERPES SIMPLEX
     Dosage: 875 MG, BID
     Route: 048
  4. IBRUTINIB [Suspect]
     Active Substance: IBRUTINIB
     Indication: NON-HODGKIN^S LYMPHOMA
     Dosage: 560 MG, QD
     Route: 048
     Dates: start: 20160316
  5. FLAGYL [Concomitant]
     Active Substance: METRONIDAZOLE\METRONIDAZOLE HYDROCHLORIDE
     Indication: GASTROENTERITIS
     Dosage: 500 MG, TID
     Route: 048
  6. NIVOLUMAB [Suspect]
     Active Substance: NIVOLUMAB
     Indication: NON-HODGKIN^S LYMPHOMA
     Dosage: 285 MG, Q2WK
     Route: 042
     Dates: start: 20160323, end: 20160630
  7. OPTALGIN [Concomitant]
     Active Substance: METAMIZOLE
     Indication: GASTROENTERITIS
     Dosage: 2 ML, QD
     Route: 048
  8. OXYCODONE [Concomitant]
     Active Substance: OXYCODONE
     Indication: HERPES SIMPLEX
     Dosage: 2 ML, UNK
     Route: 048
  9. LOSEC [Concomitant]
     Active Substance: OMEPRAZOLE
     Indication: GASTROENTERITIS
     Dosage: 20 MG, QD
     Route: 048
  10. CIPROFLOXACIN. [Concomitant]
     Active Substance: CIPROFLOXACIN
     Indication: HERPES SIMPLEX
     Dosage: 500 MG, BID
     Route: 048
  11. TRAMADOL. [Concomitant]
     Active Substance: TRAMADOL
     Indication: HERPES SIMPLEX
     Route: 048
  12. PARACETAMOL [Concomitant]
     Active Substance: ACETAMINOPHEN
     Indication: HERPES SIMPLEX
     Route: 048
  13. NEUPOGEN [Concomitant]
     Active Substance: FILGRASTIM
     Indication: NEUTROPENIA
     Dosage: 300 MG, QD
     Route: 058
  14. CIPROXIN                           /00697201/ [Concomitant]
     Active Substance: CIPROFLOXACIN
     Indication: GASTROENTERITIS
     Dosage: 500 MG, BID
     Route: 048
  15. PAPAVERIN [Concomitant]
     Indication: GASTROENTERITIS
     Dosage: 160 MG, QD
     Route: 042
  16. CLINDAMYCIN. [Concomitant]
     Active Substance: CLINDAMYCIN
     Indication: ORAL HERPES
     Dosage: 150 MG, BID
     Route: 048
  17. NAPROXEN SODIUM. [Concomitant]
     Active Substance: NAPROXEN SODIUM
     Indication: HERPES SIMPLEX
     Dosage: 275 MG, BID
     Route: 048
  18. NEUPOGEN [Concomitant]
     Active Substance: FILGRASTIM
     Indication: PRODUCT USED FOR UNKNOWN INDICATION
     Dosage: 480 MG, QD
     Route: 058

REACTIONS (1)
  - Enterocolitis [Recovered/Resolved with Sequelae]

NARRATIVE: CASE EVENT DATE: 20160804
